FAERS Safety Report 20950681 (Version 3)
Quarter: 2022Q3

REPORT INFORMATION
  Report Type: Spontaneous
  Country: US (occurrence: US)
  Receive Date: 20220613
  Receipt Date: 20220706
  Transmission Date: 20221026
  Serious: No
  Sender: FDA-Public Use
  Company Number: US-IDORSIA-000522-2022-US

PATIENT
  Sex: Female

DRUGS (1)
  1. QUVIVIQ [Suspect]
     Active Substance: DARIDOREXANT
     Indication: Insomnia
     Dosage: 50 MG, 30 MINUTES BEFORE BEDTIME
     Route: 048
     Dates: start: 20220605, end: 20220605

REACTIONS (3)
  - Somnolence [Recovered/Resolved]
  - Hangover [Recovered/Resolved]
  - Poor quality sleep [Unknown]
